FAERS Safety Report 11555988 (Version 1)
Quarter: 2015Q3

REPORT INFORMATION
  Report Type: Spontaneous
  Country: PT (occurrence: PT)
  Receive Date: 20150925
  Receipt Date: 20150925
  Transmission Date: 20151125
  Serious: Yes (Hospitalization, Other)
  Sender: FDA-Public Use
  Company Number: PT-APOTEX-2015AP013093

PATIENT
  Age: 55 Year
  Sex: Female

DRUGS (1)
  1. PAXIL [Suspect]
     Active Substance: PAROXETINE HYDROCHLORIDE
     Indication: MAJOR DEPRESSION
     Dosage: 20 MG, QD
     Route: 065

REACTIONS (6)
  - Excessive eye blinking [Unknown]
  - Gait disturbance [Unknown]
  - Tic [Unknown]
  - Major depression [Unknown]
  - Primary progressive multiple sclerosis [Unknown]
  - Suicidal ideation [Unknown]
